FAERS Safety Report 17481142 (Version 1)
Quarter: 2020Q1

REPORT INFORMATION
  Report Type: Spontaneous
  Country: US (occurrence: US)
  Receive Date: 20200302
  Receipt Date: 20200302
  Transmission Date: 20200409
  Serious: No
  Sender: FDA-Public Use
  Company Number: US-DRREDDYS-USA/USA/20/0119900

PATIENT
  Sex: Male

DRUGS (1)
  1. METOPROLOL SUCCINATE. [Suspect]
     Active Substance: METOPROLOL SUCCINATE
     Indication: PRODUCT USED FOR UNKNOWN INDICATION
     Route: 048

REACTIONS (5)
  - Orthostatic hypotension [Unknown]
  - Hypoaesthesia [Recovered/Resolved]
  - Adverse drug reaction [Unknown]
  - Feeling abnormal [Not Recovered/Not Resolved]
  - Dyspnoea [Recovered/Resolved]
